FAERS Safety Report 21583899 (Version 1)
Quarter: 2022Q4

REPORT INFORMATION
  Report Type: Spontaneous
  Country: IT (occurrence: IT)
  Receive Date: 20221111
  Receipt Date: 20221111
  Transmission Date: 20230112
  Serious: Yes (Hospitalization)
  Sender: FDA-Public Use
  Company Number: None

PATIENT
  Age: 78 Year
  Sex: Female

DRUGS (6)
  1. CIPROFLOXACIN [Suspect]
     Active Substance: CIPROFLOXACIN
     Indication: Pyrexia
     Dosage: UNIT DOSE : 500 MG,FREQUENCY TIME : 12 HOURS, THERAPY DURATION : 6 DAYS
     Route: 065
     Dates: start: 20221008, end: 20221014
  2. ALLOPURINOL [Suspect]
     Active Substance: ALLOPURINOL
     Indication: Hyperuricaemia
     Dosage: THERAPY DURATION : 24 DAYS
     Route: 065
     Dates: start: 20220915, end: 20221009
  3. IRBESARTAN + IDROCLOROTIAZIDE [Concomitant]
     Indication: Hypertension
     Dosage: UNIT DOSE : 12.5  MG,
  4. IRBESARTAN + IDROCLOROTIAZIDE [Concomitant]
     Dosage: THE PATIENT TAKES THE ASSOCIATION IRBESARTAN / HYDROCHLOROTHIAZIDE 150 / 12.5 MG, UNIT DOSE : 150 MG
  5. NEBIVOLOL [Concomitant]
     Active Substance: NEBIVOLOL
     Indication: Hypertension
     Dosage: UNIT DOSE : 5 MG,FREQUENCY TIME : 24 HOURS
  6. SIMVASTATIN [Concomitant]
     Active Substance: SIMVASTATIN
     Indication: Product used for unknown indication
     Dosage: UNIT DOSE : 20 MG,

REACTIONS (6)
  - Eosinophilia [Not Recovered/Not Resolved]
  - Hypertransaminasaemia [Not Recovered/Not Resolved]
  - Rash macular [Recovering/Resolving]
  - Drug reaction with eosinophilia and systemic symptoms [Recovering/Resolving]
  - Pyrexia [Recovered/Resolved]
  - Pruritus [Recovering/Resolving]

NARRATIVE: CASE EVENT DATE: 20221001
